FAERS Safety Report 11114388 (Version 2)
Quarter: 2015Q2

REPORT INFORMATION
  Report Type: Spontaneous
  Country: GB (occurrence: GB)
  Receive Date: 20150514
  Receipt Date: 20150522
  Transmission Date: 20150821
  Serious: Yes (Other)
  Sender: FDA-Public Use
  Company Number: GB-ROCHE-1576783

PATIENT
  Sex: Male

DRUGS (3)
  1. RITUXIMAB [Suspect]
     Active Substance: RITUXIMAB
     Indication: PRODUCT USED FOR UNKNOWN INDICATION
     Route: 065
  2. SULFASALAZINE. [Concomitant]
     Active Substance: SULFASALAZINE
     Dosage: 2 TABLETS TWICE A DAY TO 3 TABLETS TWICE A DAY.
     Route: 065
  3. PREDNISOLONE. [Concomitant]
     Active Substance: PREDNISOLONE
     Dosage: 2 TABS EVERY 12 HOURS
     Route: 065

REACTIONS (4)
  - Joint stiffness [Unknown]
  - Drug ineffective [Unknown]
  - Pain [Unknown]
  - Arthralgia [Unknown]
